FAERS Safety Report 12496978 (Version 1)
Quarter: 2016Q2

REPORT INFORMATION
  Report Type: Spontaneous
  Country: BR (occurrence: BR)
  Receive Date: 20160624
  Receipt Date: 20160624
  Transmission Date: 20160815
  Serious: Yes (Other)
  Sender: FDA-Public Use
  Company Number: BR-REGENERON PHARMACEUTICALS, INC.-2016-18574

PATIENT

DRUGS (1)
  1. EYLEA [Suspect]
     Active Substance: AFLIBERCEPT
     Indication: PRODUCT USED FOR UNKNOWN INDICATION
     Dosage: TOTAL NUMBER OF EYLIA INJECTIONS PRIOR TO EVENT ONSET WAS NOT REPORTED.
     Route: 031
     Dates: start: 20160609, end: 20160609

REACTIONS (5)
  - Vitritis [Recovering/Resolving]
  - Retinal haemorrhage [Unknown]
  - Eye pain [Recovering/Resolving]
  - Multiple use of single-use product [Recovering/Resolving]
  - Uveitis [Recovering/Resolving]

NARRATIVE: CASE EVENT DATE: 20160609
